FAERS Safety Report 19216067 (Version 4)
Quarter: 2021Q4

REPORT INFORMATION
  Report Type: Report from Study
  Country: CA (occurrence: CA)
  Receive Date: 20210505
  Receipt Date: 20211101
  Transmission Date: 20220304
  Serious: Yes (Hospitalization, Disabling)
  Sender: FDA-Public Use
  Company Number: NVSC2021CA097865

PATIENT
  Age: 60 Year
  Sex: Female
  Weight: 111.8 kg

DRUGS (15)
  1. OCTREOTIDE ACETATE [Suspect]
     Active Substance: OCTREOTIDE ACETATE
     Indication: Pancreatic neuroendocrine tumour metastatic
     Dosage: 60 MG, Q28 DAYS
     Route: 030
     Dates: start: 20200728
  2. OCTREOTIDE ACETATE [Suspect]
     Active Substance: OCTREOTIDE ACETATE
  3. OCTREOTIDE ACETATE [Suspect]
     Active Substance: OCTREOTIDE ACETATE
  4. FUROSEMIDE [Concomitant]
     Active Substance: FUROSEMIDE
     Indication: Product used for unknown indication
     Dosage: UNK
     Route: 065
  5. APIXABAN [Concomitant]
     Active Substance: APIXABAN
     Indication: Product used for unknown indication
     Dosage: 5 MG, BID
     Route: 048
  6. VENLAFAXINE [Concomitant]
     Active Substance: VENLAFAXINE HYDROCHLORIDE
     Indication: Product used for unknown indication
     Dosage: 300 MG, DAILY
     Route: 048
  7. HYDROMORPHONE [Concomitant]
     Active Substance: HYDROMORPHONE
     Indication: Product used for unknown indication
     Dosage: 1-2MG, Q4H
     Route: 048
  8. HYDROMORPHONE [Concomitant]
     Active Substance: HYDROMORPHONE
     Dosage: 3 MG, Q12H
     Route: 048
  9. LEVOTHYROXINE [Concomitant]
     Active Substance: LEVOTHYROXINE
     Indication: Product used for unknown indication
     Dosage: 175 UG, DAILY 6
     Route: 048
  10. VITAMIN D [Concomitant]
     Active Substance: VITAMIN D NOS
     Indication: Product used for unknown indication
     Dosage: 5000 UNITS, DAILY
     Route: 048
  11. ACETAMINOPHEN [Concomitant]
     Active Substance: ACETAMINOPHEN
     Indication: Product used for unknown indication
     Dosage: 500-1000 MG, Q4H
     Route: 048
  12. ONDANSETRON [Concomitant]
     Active Substance: ONDANSETRON
     Indication: Product used for unknown indication
     Dosage: 8 MG, TID
     Route: 048
  13. TEARS NATURALE II [Concomitant]
     Indication: Product used for unknown indication
     Dosage: 1 DROP (S) BOTH EYES, BID
     Route: 047
  14. BREXPIPRAZOLE [Concomitant]
     Active Substance: BREXPIPRAZOLE
     Indication: Product used for unknown indication
     Dosage: 1 MG, DAILY
     Route: 048
  15. SENOKOT [Concomitant]
     Active Substance: SENNOSIDES
     Indication: Product used for unknown indication
     Dosage: 8.6 MG, QHS
     Route: 048

REACTIONS (1)
  - Generalised oedema [Not Recovered/Not Resolved]

NARRATIVE: CASE EVENT DATE: 20210428
